FAERS Safety Report 21902967 (Version 1)
Quarter: 2023Q1

REPORT INFORMATION
  Report Type: Spontaneous
  Country: CA (occurrence: CA)
  Receive Date: 20230124
  Receipt Date: 20230124
  Transmission Date: 20230418
  Serious: Yes (Hospitalization, Other)
  Sender: FDA-Public Use
  Company Number: CA-002147023-NVSC2023CA012114

PATIENT
  Age: 50 Year
  Sex: Female

DRUGS (35)
  1. ERELZI [Suspect]
     Active Substance: ETANERCEPT-SZZS
     Indication: Complex regional pain syndrome
     Dosage: UNK
     Route: 065
  2. ACETYLCYSTEINE [Suspect]
     Active Substance: ACETYLCYSTEINE
     Indication: Complex regional pain syndrome
     Dosage: UNK (SOLUTION INHALATION)
     Route: 065
  3. PREGABALIN [Suspect]
     Active Substance: PREGABALIN
     Indication: Complex regional pain syndrome
     Dosage: UNK (CAPSULE)
     Route: 065
  4. MONTELUKAST [Suspect]
     Active Substance: MONTELUKAST SODIUM
     Indication: Complex regional pain syndrome
     Dosage: UNK
     Route: 065
  5. CLONIDINE [Suspect]
     Active Substance: CLONIDINE
     Indication: Complex regional pain syndrome
     Dosage: UNK
     Route: 065
  6. DILTIAZEM [Suspect]
     Active Substance: DILTIAZEM
     Indication: Complex regional pain syndrome
     Dosage: UNK
     Route: 065
  7. MEMANTINE [Suspect]
     Active Substance: MEMANTINE
     Indication: Complex regional pain syndrome
     Dosage: UNK
     Route: 065
  8. METOPROLOL [Suspect]
     Active Substance: METOPROLOL
     Indication: Complex regional pain syndrome
     Dosage: UNK
     Route: 065
  9. MAGNESIUM [Suspect]
     Active Substance: MAGNESIUM
     Indication: Product used for unknown indication
     Dosage: UNK
     Route: 065
  10. AMLODIPINE BESYLATE [Suspect]
     Active Substance: AMLODIPINE BESYLATE
     Indication: Complex regional pain syndrome
     Dosage: UNK
     Route: 065
  11. MYCOPHENOLATE MOFETIL [Suspect]
     Active Substance: MYCOPHENOLATE MOFETIL
     Indication: Complex regional pain syndrome
     Dosage: UNK
     Route: 065
  12. AMITRIPTYLINE [Suspect]
     Active Substance: AMITRIPTYLINE
     Indication: Complex regional pain syndrome
     Dosage: UNK
     Route: 065
  13. VITAMIN C [Suspect]
     Active Substance: ASCORBIC ACID
     Indication: Complex regional pain syndrome
     Dosage: 100 MG
     Route: 065
  14. BUMETANIDE [Suspect]
     Active Substance: BUMETANIDE
     Indication: Complex regional pain syndrome
     Dosage: UNK
     Route: 065
  15. CALCITONIN [Suspect]
     Active Substance: CALCITONIN
     Indication: Complex regional pain syndrome
     Dosage: UNK
     Route: 065
  16. CAPSAICIN [Suspect]
     Active Substance: CAPSAICIN
     Indication: Complex regional pain syndrome
     Dosage: UNK
     Route: 061
  17. CIMETIDINE [Suspect]
     Active Substance: CIMETIDINE
     Indication: Complex regional pain syndrome
     Dosage: UNK
     Route: 065
  18. HYDROXYCHLOROQUINE SULFATE [Suspect]
     Active Substance: HYDROXYCHLOROQUINE SULFATE
     Indication: Complex regional pain syndrome
     Dosage: UNK
     Route: 065
  19. IBUDILAST [Suspect]
     Active Substance: IBUDILAST
     Indication: Product used for unknown indication
     Dosage: UNK
     Route: 065
  20. KETAMINE HYDROCHLORIDE [Suspect]
     Active Substance: KETAMINE HYDROCHLORIDE
     Indication: Complex regional pain syndrome
     Dosage: UNK
     Route: 048
  21. KINERET [Suspect]
     Active Substance: ANAKINRA
     Indication: Complex regional pain syndrome
     Dosage: UNK (100MG PER SYRINGE SINGLE-USE, PRESERVATIVE-FREE PREFILLED SYRINGES)
     Route: 058
  22. LIDOCAINE HYDROCHLORIDE [Suspect]
     Active Substance: LIDOCAINE HYDROCHLORIDE
     Indication: Complex regional pain syndrome
     Dosage: UNK (INJECTION USP LIQUID PARENTERAL LIQUID PARENTERAL (UNSPECIFIED))
     Route: 051
  23. LITHIUM CARBONATE [Suspect]
     Active Substance: LITHIUM CARBONATE
     Indication: Complex regional pain syndrome
     Dosage: UNK
     Route: 065
  24. MEXILETINE HYDROCHLORIDE [Suspect]
     Active Substance: MEXILETINE HYDROCHLORIDE
     Indication: Complex regional pain syndrome
     Dosage: UNK
     Route: 065
  25. ACETYLCYSTEINE [Suspect]
     Active Substance: ACETYLCYSTEINE
     Indication: Complex regional pain syndrome
     Dosage: UNK
     Route: 065
  26. NALTREXONE HYDROCHLORIDE [Suspect]
     Active Substance: NALTREXONE HYDROCHLORIDE
     Indication: Complex regional pain syndrome
     Dosage: 1 DOSAGE FORM, QD
     Route: 065
  27. OTEZLA [Suspect]
     Active Substance: APREMILAST
     Indication: Complex regional pain syndrome
     Dosage: UNK
     Route: 065
  28. PALMIDROL [Suspect]
     Active Substance: PALMIDROL
     Indication: Complex regional pain syndrome
     Dosage: UNK
     Route: 065
  29. PENTOXIFYLLINE [Suspect]
     Active Substance: PENTOXIFYLLINE
     Indication: Complex regional pain syndrome
     Dosage: UNK
     Route: 065
  30. PREDNISONE [Suspect]
     Active Substance: PREDNISONE
     Indication: Complex regional pain syndrome
     Dosage: 1 DOSAGE FORM, QD
     Route: 065
  31. RIBOFLAVIN [Suspect]
     Active Substance: RIBOFLAVIN
     Indication: Migraine prophylaxis
     Dosage: UNK
     Route: 065
  32. RIBOFLAVIN [Suspect]
     Active Substance: RIBOFLAVIN
     Indication: Complex regional pain syndrome
  33. SPIRONOLACTONE [Suspect]
     Active Substance: SPIRONOLACTONE
     Indication: Complex regional pain syndrome
     Dosage: UNK
     Route: 065
  34. EZETIMIBE [Concomitant]
     Active Substance: EZETIMIBE
     Indication: Product used for unknown indication
     Dosage: UNK
     Route: 065
  35. TRAZODONE [Concomitant]
     Active Substance: TRAZODONE HYDROCHLORIDE
     Indication: Product used for unknown indication
     Dosage: UNK
     Route: 065

REACTIONS (3)
  - Poor quality sleep [Recovered/Resolved]
  - Fatigue [Recovered/Resolved]
  - Drug ineffective [Recovered/Resolved]
